FAERS Safety Report 7085147-6 (Version None)
Quarter: 2010Q4

REPORT INFORMATION
  Report Type: 
  Country: None (occurrence: None)
  Receive Date: 20101105
  Receipt Date: 20101029
  Transmission Date: 20110411
  Serious: Yes (Hospitalization)
  Sender: FDA-Public Use
  Company Number: US-BRISTOL-MYERS SQUIBB COMPANY-15360274

PATIENT
  Age: 57 Year
  Sex: Female
  Weight: 129 kg

DRUGS (2)
  1. IXEMPRA KIT [Suspect]
     Indication: ENDOMETRIAL CANCER
     Dosage: 30 MG/M2 OVER 1 HR ON DAY 1*6 CYCLES
     Route: 042
     Dates: start: 20100812
  2. CARBOPLATIN [Suspect]
     Indication: ENDOMETRIAL CANCER
     Dosage: AUC =6 IV OVER 30MNTS ONDAY 1*6 CYCLES
     Route: 042
     Dates: start: 20100812

REACTIONS (4)
  - ALANINE AMINOTRANSFERASE INCREASED [None]
  - BLOOD ALKALINE PHOSPHATASE INCREASED [None]
  - HEPATITIS VIRAL [None]
  - HYPERBILIRUBINAEMIA [None]
